FAERS Safety Report 10057847 (Version 2)
Quarter: 2014Q2

REPORT INFORMATION
  Report Type: Spontaneous
  Country: GB (occurrence: GB)
  Receive Date: 20140404
  Receipt Date: 20140421
  Transmission Date: 20141212
  Serious: Yes (Hospitalization)
  Sender: FDA-Public Use
  Company Number: GB-RANBAXY-2014RR-79570

PATIENT
  Age: 39 Year
  Sex: Male

DRUGS (6)
  1. AMISULPRIDE [Suspect]
     Indication: SCHIZOPHRENIA
     Dosage: 50 MG, UNK
     Route: 048
  2. CLOZARIL [Suspect]
     Indication: SCHIZOPHRENIA
     Dosage: UNK UKN, UNK
     Route: 048
     Dates: start: 20041129
  3. CLOZARIL [Suspect]
     Dosage: 325 MG, QD
     Route: 048
  4. LAMOTRIGINE [Suspect]
     Indication: EPILEPSY
     Dosage: 475 MG, UNK
     Route: 048
  5. METFORMIN [Suspect]
     Indication: DIABETES MELLITUS
     Dosage: 1500 MG, UNK
     Route: 048
  6. SIMVASTATIN [Suspect]
     Indication: HYPERCHOLESTEROLAEMIA
     Dosage: 20 MG, UNK
     Route: 048

REACTIONS (3)
  - Antipsychotic drug level decreased [Unknown]
  - Aggression [Unknown]
  - Schizophrenia [Recovering/Resolving]
